FAERS Safety Report 11806853 (Version 2)
Quarter: 2015Q4

REPORT INFORMATION
  Report Type: Spontaneous
  Country: IT (occurrence: IT)
  Receive Date: 20151207
  Receipt Date: 20151218
  Transmission Date: 20160305
  Serious: Yes (Hospitalization)
  Sender: FDA-Public Use
  Company Number: PHHY2015IT155869

PATIENT
  Age: 49 Year
  Sex: Female

DRUGS (4)
  1. RIVOTRIL [Suspect]
     Active Substance: CLONAZEPAM
     Indication: SUICIDE ATTEMPT
     Dosage: 125 MG, ONCE/SINGLE
     Route: 048
     Dates: start: 20150418, end: 20150418
  2. DELORAZEPAM [Suspect]
     Active Substance: DELORAZEPAM
     Indication: SUICIDE ATTEMPT
     Dosage: 20 MG, ONCE/SINGLE
     Route: 048
     Dates: start: 20150418, end: 20150418
  3. LORAZEPAM. [Suspect]
     Active Substance: LORAZEPAM
     Indication: SUICIDE ATTEMPT
     Dosage: 120 DF, ONCE/SINGLE
     Route: 048
     Dates: start: 20150418, end: 20150418
  4. CARBOLITHIUM [Suspect]
     Active Substance: LITHIUM CARBONATE
     Indication: SUICIDE ATTEMPT
     Dosage: 10 DF, ONCE/SINGLE
     Route: 048
     Dates: start: 20150418, end: 20150418

REACTIONS (3)
  - Suicide attempt [Unknown]
  - Drug abuse [Unknown]
  - Sopor [Unknown]

NARRATIVE: CASE EVENT DATE: 20150418
